FAERS Safety Report 5023184-3 (Version None)
Quarter: 2006Q2

REPORT INFORMATION
  Report Type: 
  Country: None (occurrence: None)
  Receive Date: 20060428
  Receipt Date: 20060306
  Transmission Date: 20061013
  Serious: No
  Sender: FDA-Public Use
  Company Number: 012155

PATIENT
  Age: 66 Year
  Sex: Female

DRUGS (4)
  1. PRIALT [Suspect]
     Indication: BACK PAIN
     Dosage: SEE IMAGE
     Route: 037
     Dates: start: 20060201, end: 20060201
  2. PRIALT [Suspect]
     Indication: BACK PAIN
     Dosage: SEE IMAGE
     Route: 037
     Dates: start: 20060201, end: 20060201
  3. PRIALT [Suspect]
     Indication: BACK PAIN
     Dosage: SEE IMAGE
     Route: 037
     Dates: start: 20060101
  4. AMBIEN [Concomitant]

REACTIONS (14)
  - ANXIETY [None]
  - ASTHENIA [None]
  - DECREASED APPETITE [None]
  - DYSPHAGIA [None]
  - FATIGUE [None]
  - GAIT DISTURBANCE [None]
  - HEADACHE [None]
  - INSOMNIA [None]
  - LETHARGY [None]
  - LOCAL SWELLING [None]
  - MEMORY IMPAIRMENT [None]
  - NASAL CONGESTION [None]
  - NECK PAIN [None]
  - VISUAL ACUITY REDUCED [None]
